APPROVED DRUG PRODUCT: REDITREX
Active Ingredient: METHOTREXATE
Strength: 7.5MG/0.3ML (7.5MG/0.3ML)
Dosage Form/Route: SOLUTION;SUBCUTANEOUS
Application: N210737 | Product #001
Applicant: NORDIC GROUP BV
Approved: Nov 27, 2019 | RLD: Yes | RS: No | Type: DISCN